FAERS Safety Report 6550892-5 (Version None)
Quarter: 2010Q1

REPORT INFORMATION
  Report Type: 
  Country: None (occurrence: None)
  Receive Date: 20100121
  Receipt Date: 20100111
  Transmission Date: 20100710
  Serious: Yes (Death)
  Sender: FDA-Public Use
  Company Number: 004555

PATIENT
  Age: 44 Year
  Sex: Female

DRUGS (8)
  1. ALPRAZOLAM [Suspect]
  2. CARISOPRODOL [Suspect]
  3. ETHANOL [Suspect]
  4. BENZODIAZEPINE DERIVATIVES [Suspect]
  5. PREGABALIN [Suspect]
  6. PHENOBARBITAL [Concomitant]
  7. ZOLPIDEM [Concomitant]
  8. LORAZEPAM [Concomitant]

REACTIONS (1)
  - COMPLETED SUICIDE [None]
